FAERS Safety Report 11498047 (Version 1)
Quarter: 2015Q3

REPORT INFORMATION
  Report Type: Spontaneous
  Country: US (occurrence: US)
  Receive Date: 20150911
  Receipt Date: 20150911
  Transmission Date: 20151125
  Serious: Yes (Life-Threatening, Hospitalization, Disabling, Other)
  Sender: FDA-Public Use
  Company Number: US-SA-2015SA138535

PATIENT
  Age: 59 Year
  Sex: Female
  Weight: 58.96 kg

DRUGS (4)
  1. NITROGLYCERINE [Concomitant]
     Active Substance: NITROGLYCERIN
  2. PREDNISONE. [Suspect]
     Active Substance: PREDNISONE
     Route: 065
  3. INDERAL LA [Suspect]
     Active Substance: PROPRANOLOL HYDROCHLORIDE
     Indication: MIGRAINE
     Route: 065
     Dates: start: 1994
  4. PLAVIX [Suspect]
     Active Substance: CLOPIDOGREL BISULFATE
     Route: 048
     Dates: start: 2014

REACTIONS (11)
  - Fluid retention [Unknown]
  - Anaphylactic reaction [Unknown]
  - Coronary artery bypass [Unknown]
  - Coronary vascular graft occlusion [Unknown]
  - Dyspnoea [Unknown]
  - Quality of life decreased [Unknown]
  - Chest pain [Unknown]
  - Blood pressure increased [Unknown]
  - Limb discomfort [Unknown]
  - Stent placement [Unknown]
  - Gait disturbance [Unknown]

NARRATIVE: CASE EVENT DATE: 2014
